FAERS Safety Report 5229174-X (Version None)
Quarter: 2007Q1

REPORT INFORMATION
  Report Type: 
  Country: None (occurrence: None)
  Receive Date: 20061201
  Receipt Date: 20060925
  Transmission Date: 20070707
  Serious: No
  Sender: FDA-Public Use
  Company Number: US200609006415

PATIENT
  Sex: Male

DRUGS (2)
  1. CYMBALTA [Suspect]
  2. TOPAMAX [Concomitant]

REACTIONS (1)
  - CORNEAL PIGMENTATION [None]
